FAERS Safety Report 9282665 (Version 1)
Quarter: 2013Q2

REPORT INFORMATION
  Report Type: Spontaneous
  Country: BR (occurrence: BR)
  Receive Date: 20130510
  Receipt Date: 20130510
  Transmission Date: 20140414
  Serious: Yes (Death)
  Sender: FDA-Public Use
  Company Number: PHHY2013BR034583

PATIENT
  Sex: 0

DRUGS (4)
  1. TEGRETOL [Suspect]
     Dosage: 200 MG, UNK
     Route: 048
  2. TEGRETOL [Suspect]
     Dosage: 100 MG, UNK
  3. CALCIUM [Suspect]
     Dosage: 3 DF, DAILY
  4. FRISIUM [Suspect]
     Dosage: 1 DF, BID
     Route: 048

REACTIONS (1)
  - Cardiac arrest [Fatal]
